FAERS Safety Report 8949771 (Version 1)
Quarter: 2012Q4

REPORT INFORMATION
  Report Type: 
  Country: PL (occurrence: PL)
  Receive Date: 20121206
  Receipt Date: 20121206
  Transmission Date: 20130627
  Serious: Yes (Other)
  Sender: FDA-Public Use
  Company Number: PL-ROCHE-1162750

PATIENT
  Sex: Female

DRUGS (3)
  1. TRASTUZUMAB [Suspect]
     Indication: PRODUCT USED FOR UNKNOWN INDICATION
     Route: 048
     Dates: start: 200512
  2. CAPECITABINE [Suspect]
     Indication: PRODUCT USED FOR UNKNOWN INDICATION
     Route: 048
     Dates: start: 200512
  3. PACLITAXEL [Concomitant]

REACTIONS (5)
  - Febrile neutropenia [Unknown]
  - Infection [Unknown]
  - Skin toxicity [Unknown]
  - Palmar-plantar erythrodysaesthesia syndrome [Unknown]
  - Blood bilirubin increased [Unknown]
